FAERS Safety Report 7779968-1 (Version None)
Quarter: 2011Q3

REPORT INFORMATION
  Report Type: 
  Country: None (occurrence: None)
  Receive Date: 20110927
  Receipt Date: 20110830
  Transmission Date: 20111222
  Serious: No
  Sender: FDA-Public Use
  Company Number: US-MYLANLABS-2011S1016750

PATIENT
  Age: 65 Year
  Sex: Male

DRUGS (3)
  1. TACROLIMUS [Suspect]
     Indication: TRANSPLANT
     Dates: start: 20110101, end: 20110101
  2. PROGRAF [Suspect]
     Indication: TRANSPLANT
     Dates: start: 20011201, end: 20110101
  3. PROGRAF [Suspect]
     Dates: start: 20110101, end: 20110101

REACTIONS (4)
  - SLEEP DISORDER [None]
  - DYSPEPSIA [None]
  - ABDOMINAL DISTENSION [None]
  - NAUSEA [None]
